FAERS Safety Report 5834843-4 (Version None)
Quarter: 2008Q3

REPORT INFORMATION
  Report Type: 
  Country: None (occurrence: None)
  Receive Date: 20080801
  Receipt Date: 20080211
  Transmission Date: 20090109
  Serious: Yes (Hospitalization, Other)
  Sender: FDA-Public Use
  Company Number: GXBR2008US00603

PATIENT
  Age: 46 Year
  Sex: Female

DRUGS (12)
  1. TIZANIDINE HCL [Suspect]
     Dosage: 8 MG, QID, ORAL; ^6^ PER DAY, ORAL; ^8^ PER DAY, ORAL
     Route: 048
     Dates: start: 20040101, end: 20070501
  2. TIZANIDINE HCL [Suspect]
     Dosage: 8 MG, QID, ORAL; ^6^ PER DAY, ORAL; ^8^ PER DAY, ORAL
     Route: 048
  3. HUMALOG [Concomitant]
  4. IMODIUM A-D [Concomitant]
  5. CYMBALTA [Concomitant]
  6. PRILOSEC [Concomitant]
  7. MECLIZINE [Concomitant]
  8. TRIAMTERENE (TRIAMTERENE) [Concomitant]
  9. ESTRACE [Concomitant]
  10. NADOLOL [Concomitant]
  11. AMITRIPTLINE HYDROCHLORIDE TAB [Concomitant]
  12. NEURONTIN [Concomitant]

REACTIONS (36)
  - ABDOMINAL PAIN UPPER [None]
  - AMNESIA [None]
  - ARTHRALGIA [None]
  - ASTHENIA [None]
  - BLOOD CHLORIDE DECREASED [None]
  - BLOOD CREATININE INCREASED [None]
  - BLOOD SODIUM DECREASED [None]
  - CHEST PAIN [None]
  - CONFUSIONAL STATE [None]
  - CRYING [None]
  - DECUBITUS ULCER [None]
  - DEPRESSED LEVEL OF CONSCIOUSNESS [None]
  - DIFFERENTIAL WHITE BLOOD CELL COUNT ABNORMAL [None]
  - DYSKINESIA [None]
  - FALL [None]
  - FLASHBACK [None]
  - GAIT DISTURBANCE [None]
  - GLOMERULAR FILTRATION RATE DECREASED [None]
  - HALLUCINATIONS, MIXED [None]
  - HEADACHE [None]
  - HYPERGLYCAEMIA [None]
  - HYPERHIDROSIS [None]
  - HYPOAESTHESIA [None]
  - INAPPROPRIATE AFFECT [None]
  - INSOMNIA [None]
  - MENTAL STATUS CHANGES [None]
  - MUSCLE SPASMS [None]
  - MUSCLE TWITCHING [None]
  - PAIN IN EXTREMITY [None]
  - PYREXIA [None]
  - RED BLOOD CELL COUNT DECREASED [None]
  - RESTLESSNESS [None]
  - TREMOR [None]
  - VENOUS ANGIOMA OF BRAIN [None]
  - VISION BLURRED [None]
  - WHITE BLOOD CELL COUNT INCREASED [None]
